FAERS Safety Report 24162221 (Version 1)
Quarter: 2024Q3

REPORT INFORMATION
  Report Type: Spontaneous
  Country: US (occurrence: US)
  Receive Date: 20240801
  Receipt Date: 20240801
  Transmission Date: 20241017
  Serious: No
  Sender: NOVARTIS
  Company Number: US-002147023-NVSC2024US155947

PATIENT
  Sex: Female
  Weight: 87.09 kg

DRUGS (2)
  1. SCEMBLIX [Suspect]
     Active Substance: ASCIMINIB HYDROCHLORIDE
     Indication: Chronic myeloid leukaemia
     Dosage: 40 MG, QD
     Route: 048
     Dates: start: 20240703
  2. SCEMBLIX [Suspect]
     Active Substance: ASCIMINIB HYDROCHLORIDE
     Indication: Philadelphia chromosome positive

REACTIONS (3)
  - Bone disorder [Not Recovered/Not Resolved]
  - Nausea [Not Recovered/Not Resolved]
  - Bone pain [Unknown]
